FAERS Safety Report 8240212-2 (Version None)
Quarter: 2012Q1

REPORT INFORMATION
  Report Type: 
  Country: None (occurrence: None)
  Receive Date: 20120328
  Receipt Date: 20120319
  Transmission Date: 20120608
  Serious: Yes (Life-Threatening, Hospitalization, Other)
  Sender: FDA-Public Use
  Company Number: US-BAYER-2011-072254

PATIENT
  Age: 21 Year
  Sex: Female
  Weight: 58.503 kg

DRUGS (3)
  1. PRILOSEC [Concomitant]
     Indication: NAUSEA
  2. YAZ [Suspect]
     Indication: CONTRACEPTION
     Dosage: UNK
     Dates: start: 20080101, end: 20090101
  3. PRILOSEC [Concomitant]
     Indication: ABDOMINAL PAIN
     Dosage: 20 MG, QD
     Route: 048
     Dates: start: 20090811

REACTIONS (12)
  - GALLBLADDER NON-FUNCTIONING [None]
  - BILIARY DYSKINESIA [None]
  - PAIN [None]
  - ANXIETY [None]
  - ORGAN FAILURE [None]
  - CHOLECYSTITIS CHRONIC [None]
  - ASTHENIA [None]
  - EMOTIONAL DISTRESS [None]
  - INJURY [None]
  - FATIGUE [None]
  - ANHEDONIA [None]
  - GENERAL PHYSICAL HEALTH DETERIORATION [None]
